FAERS Safety Report 8224817-0 (Version None)
Quarter: 2012Q1

REPORT INFORMATION
  Report Type: 
  Country: None (occurrence: None)
  Receive Date: 20120321
  Receipt Date: 20120312
  Transmission Date: 20120608
  Serious: Yes (Other)
  Sender: FDA-Public Use
  Company Number: US-ROCHE-1022854

PATIENT
  Sex: Female
  Weight: 58.112 kg

DRUGS (5)
  1. ACCUTANE [Suspect]
     Dates: start: 19990101
  2. TETRACYCLIN [Concomitant]
     Indication: ACNE
  3. ACCUTANE [Suspect]
     Dates: start: 19980101
  4. ACCUTANE [Suspect]
     Indication: ACNE CYSTIC
     Dates: start: 19970101
  5. ORTHO TRI-CYCLEN [Concomitant]
     Indication: CONTRACEPTION

REACTIONS (4)
  - HERPES ZOSTER [None]
  - IRRITABLE BOWEL SYNDROME [None]
  - EMOTIONAL DISTRESS [None]
  - INFLAMMATORY BOWEL DISEASE [None]
